FAERS Safety Report 5345147-0 (Version None)
Quarter: 2007Q2

REPORT INFORMATION
  Report Type: 
  Country: None (occurrence: None)
  Receive Date: 20070605
  Receipt Date: 20070529
  Transmission Date: 20071010
  Serious: Yes (Hospitalization, Disabling)
  Sender: FDA-Public Use
  Company Number: GBWYE581103MAY07

PATIENT
  Sex: Female

DRUGS (4)
  1. VENLAFAXIINE HCL [Suspect]
     Indication: MENOPAUSAL SYMPTOMS
     Route: 048
     Dates: start: 20070412
  2. HERBAL PREPARATION [Concomitant]
     Dosage: UNKNOWN
  3. STARFLOWER [Concomitant]
     Dosage: 100UG, FREQUENCY UNKNOWN
     Route: 048
  4. VITAMIN B [Concomitant]
     Dosage: UNKNOWN

REACTIONS (3)
  - HEMIPLEGIA [None]
  - MUSCLE SPASMS [None]
  - MUSCULOSKELETAL STIFFNESS [None]
